FAERS Safety Report 4287338-6 (Version None)
Quarter: 2004Q1

REPORT INFORMATION
  Report Type: 
  Country: None (occurrence: None)
  Receive Date: 20040126
  Receipt Date: 20030905
  Transmission Date: 20041129
  Serious: No
  Sender: FDA-Public Use
  Company Number: USA030741631

PATIENT
  Age: 79 Year
  Sex: Female
  Weight: 47 kg

DRUGS (6)
  1. FORTEO [Suspect]
     Indication: OSTEOPOROSIS
     Dosage: 20 UG/DAY
     Dates: start: 20030601, end: 20030801
  2. MIACALCIN [Concomitant]
  3. CALTRATE (CALCIUM CARBONATE) [Concomitant]
  4. PRILOSEC [Concomitant]
  5. ACTONEL [Concomitant]
  6. ULTRAM [Concomitant]

REACTIONS (7)
  - ASTHENIA [None]
  - CONFUSIONAL STATE [None]
  - FATIGUE [None]
  - MALAISE [None]
  - SOMNOLENCE [None]
  - STOMACH DISCOMFORT [None]
  - WEIGHT DECREASED [None]
